FAERS Safety Report 8343079-7 (Version None)
Quarter: 2012Q2

REPORT INFORMATION
  Report Type: 
  Country: None (occurrence: None)
  Receive Date: 20120508
  Receipt Date: 20120424
  Transmission Date: 20120825
  Serious: Yes (Death, Hospitalization, Other)
  Sender: FDA-Public Use
  Company Number: US-MYLANLABS-2009AC000163

PATIENT
  Age: 47 Year
  Sex: Female

DRUGS (23)
  1. DIGOXIN [Suspect]
     Route: 048
  2. POTASSIUM CHLORIDE [Concomitant]
  3. DIOVAN [Concomitant]
  4. TRUSOPT [Concomitant]
  5. LASIX [Concomitant]
  6. KLONOPIN [Concomitant]
  7. ESTRADIOL [Concomitant]
  8. DARVOCET [Concomitant]
  9. LEXAPRO [Concomitant]
  10. ENALAPRIL MALEATE [Concomitant]
  11. VASOTEC [Concomitant]
  12. LOPRESSOR [Concomitant]
  13. CADUET [Concomitant]
  14. METFORMIN [Concomitant]
  15. ACTOS [Concomitant]
  16. NORVASC [Concomitant]
  17. PLAVIX [Concomitant]
  18. NEURONTIN [Concomitant]
  19. ATOPERLOL [Concomitant]
  20. FLEXERIL [Concomitant]
  21. GLUCOPHAGE [Concomitant]
  22. GLUCOTROL [Concomitant]
  23. METOPROLOL TARTRATE [Concomitant]

REACTIONS (43)
  - LOSS OF EMPLOYMENT [None]
  - VOMITING [None]
  - BRONCHITIS [None]
  - MUSCULOSKELETAL PAIN [None]
  - WEIGHT DECREASED [None]
  - ATRIOVENTRICULAR BLOCK SECOND DEGREE [None]
  - DIARRHOEA [None]
  - ANAEMIA [None]
  - TOXICITY TO VARIOUS AGENTS [None]
  - HOT FLUSH [None]
  - PULMONARY OEDEMA [None]
  - DECREASED APPETITE [None]
  - DEPRESSION [None]
  - CEREBROVASCULAR ACCIDENT [None]
  - RETINITIS [None]
  - DIZZINESS [None]
  - HYSTERECTOMY [None]
  - ECONOMIC PROBLEM [None]
  - MOOD SWINGS [None]
  - ABASIA [None]
  - PAIN [None]
  - EMOTIONAL DISTRESS [None]
  - NAUSEA [None]
  - CATARACT [None]
  - CARDIAC FAILURE CONGESTIVE [None]
  - DYSARTHRIA [None]
  - RENAL FAILURE [None]
  - CHOLELITHIASIS [None]
  - CRYING [None]
  - MENORRHAGIA [None]
  - INJURY [None]
  - ILL-DEFINED DISORDER [None]
  - SOCIAL AVOIDANT BEHAVIOUR [None]
  - DEATH [None]
  - HYPERLIPIDAEMIA [None]
  - DIABETES MELLITUS [None]
  - WOUND INFECTION [None]
  - MENTAL STATUS CHANGES [None]
  - BRADYCARDIA [None]
  - ANXIETY [None]
  - HYPERTENSION [None]
  - HYPERTENSIVE HEART DISEASE [None]
  - DEHYDRATION [None]
